FAERS Safety Report 23103026 (Version 1)
Quarter: 2023Q4

REPORT INFORMATION
  Report Type: Spontaneous
  Country: NL (occurrence: NL)
  Receive Date: 20231025
  Receipt Date: 20231025
  Transmission Date: 20240109
  Serious: Yes (Hospitalization, Other)
  Sender: FDA-Public Use
  Company Number: NL-GILEAD-2020-0488864

PATIENT
  Age: 66 Year
  Sex: Male
  Weight: 75.7 kg

DRUGS (70)
  1. CYCLOPHOSPHAMIDE [Suspect]
     Active Substance: CYCLOPHOSPHAMIDE
     Indication: Product used for unknown indication
     Dosage: 1040 MG, QD
     Route: 042
     Dates: start: 20200910
  2. CYCLOPHOSPHAMIDE [Suspect]
     Active Substance: CYCLOPHOSPHAMIDE
     Dosage: 1040 MG, QD
     Route: 042
     Dates: start: 20200911, end: 20200912
  3. CYCLOPHOSPHAMIDE [Suspect]
     Active Substance: CYCLOPHOSPHAMIDE
     Dosage: 300 MG, ONCE/SINGLE (300 MG; 6 X 50)
     Route: 048
     Dates: start: 20201106, end: 20201106
  4. DEXAMETHASONE [Suspect]
     Active Substance: DEXAMETHASONE
     Dosage: 10 MG, QD
     Route: 042
     Dates: start: 20200922, end: 20200923
  5. DEXAMETHASONE [Suspect]
     Active Substance: DEXAMETHASONE
     Dosage: 10 MG, QD
     Route: 048
     Dates: start: 20201013, end: 20201016
  6. DEXAMETHASONE [Suspect]
     Active Substance: DEXAMETHASONE
     Dosage: 10 MG, Q12H (10 MG, BID)
     Route: 042
     Dates: start: 20200924, end: 20201001
  7. DEXAMETHASONE [Suspect]
     Active Substance: DEXAMETHASONE
     Dosage: 10 MG, Q12H (10 MG, BID)
     Route: 048
     Dates: start: 20201009, end: 20201012
  8. DEXAMETHASONE [Suspect]
     Active Substance: DEXAMETHASONE
     Dosage: 10 MG, QID
     Route: 048
     Dates: start: 20201001, end: 20201008
  9. DEXAMETHASONE [Suspect]
     Active Substance: DEXAMETHASONE
     Indication: Product used for unknown indication
     Dosage: 40 MG, QD
     Route: 048
     Dates: start: 20200902, end: 20200904
  10. DEXAMETHASONE [Suspect]
     Active Substance: DEXAMETHASONE
     Dosage: 7.5 MG, QD
     Route: 048
     Dates: start: 20201017, end: 20201019
  11. FLUDARABINE [Suspect]
     Active Substance: FLUDARABINE PHOSPHATE
     Indication: Product used for unknown indication
     Dosage: 30 MG, ONCE/SINGLE (30 MG, ONCE)
     Route: 042
     Dates: start: 20200910, end: 20200910
  12. FLUDARABINE [Suspect]
     Active Substance: FLUDARABINE PHOSPHATE
     Dosage: 30 MG, ONCE/SINGLE (30 MG, ONCE)
     Route: 042
     Dates: start: 20200912, end: 20200912
  13. MESNA [Suspect]
     Active Substance: MESNA
     Dosage: 1600 MG, Q12H (1600 MG, BID)
     Route: 048
     Dates: start: 20201106, end: 20201108
  14. MESNA [Suspect]
     Active Substance: MESNA
     Indication: Accidental exposure to product
     Dosage: 400 MG, Q8H (400 MG, TID)
     Route: 042
     Dates: start: 20200910, end: 20200910
  15. MESNA [Suspect]
     Active Substance: MESNA
     Dosage: 400 MG, Q8H (400 MG, TID)
     Route: 042
     Dates: start: 20200912, end: 20200912
  16. AMPHOTERICIN B [Concomitant]
     Active Substance: AMPHOTERICIN B
     Indication: Product used for unknown indication
     Dosage: 250 MG, QD
     Route: 042
     Dates: start: 20201010
  17. ANIDULAFUNGIN [Concomitant]
     Active Substance: ANIDULAFUNGIN
     Indication: Product used for unknown indication
     Dosage: 100 MG, QD
     Route: 042
     Dates: start: 20200811, end: 20200908
  18. ANIDULAFUNGIN [Concomitant]
     Active Substance: ANIDULAFUNGIN
     Dosage: 100 MG, QD
     Route: 042
     Dates: start: 20200909, end: 20201010
  19. ANIDULAFUNGIN [Concomitant]
     Active Substance: ANIDULAFUNGIN
     Dosage: 20 MG, ONCE/SINGLE
     Route: 042
     Dates: start: 20200902, end: 20200902
  20. CARBOPLATIN [Concomitant]
     Active Substance: CARBOPLATIN
     Indication: Product used for unknown indication
     Dosage: UNK
     Route: 065
     Dates: start: 20200714, end: 20200717
  21. CARBOPLATIN [Concomitant]
     Active Substance: CARBOPLATIN
     Indication: Product used for unknown indication
     Dosage: UNK
     Route: 065
     Dates: start: 20200714, end: 20200717
  22. CEFTRIAXONE [Concomitant]
     Active Substance: CEFTRIAXONE\CEFTRIAXONE SODIUM
     Indication: Product used for unknown indication
     Dosage: 2000 MG
     Route: 042
     Dates: start: 20201010
  23. CLEMASTINE [Concomitant]
     Active Substance: CLEMASTINE
     Indication: Product used for unknown indication
     Dosage: 2 MG, ONCE
     Route: 042
     Dates: start: 20200915, end: 20200915
  24. Cotrimoxazol aurobindo [Concomitant]
     Indication: Product used for unknown indication
     Dosage: 480 MG, QD
     Route: 048
     Dates: start: 20200915
  25. Cotrimoxazol aurobindo [Concomitant]
     Dosage: 480 MG, QD
     Route: 048
     Dates: start: 20210330, end: 20210331
  26. CYTARABINE [Concomitant]
     Active Substance: CYTARABINE
     Indication: Product used for unknown indication
     Dosage: UNK
     Route: 065
  27. ESOMEPRAZOLE [Concomitant]
     Active Substance: ESOMEPRAZOLE
     Dosage: 40 MG, QD
     Route: 048
     Dates: start: 20200912
  28. ESOMEPRAZOLE [Concomitant]
     Active Substance: ESOMEPRAZOLE
     Indication: Product used for unknown indication
     Dosage: 40 MG, Q12H (40 MG, BID)
     Route: 048
     Dates: start: 20200819, end: 20200819
  29. ESOMEPRAZOLE [Concomitant]
     Active Substance: ESOMEPRAZOLE
     Dosage: 40 MG, Q12H (40 MG, BID)
     Route: 048
     Dates: start: 20200902, end: 20200911
  30. ESOMEPRAZOLE [Concomitant]
     Active Substance: ESOMEPRAZOLE
     Dosage: 40 MG, QD
     Route: 048
     Dates: start: 20210330, end: 20210331
  31. FENTANYL [Concomitant]
     Active Substance: FENTANYL\FENTANYL CITRATE
     Dosage: 100 MG, Q8H (100 MG, TID PRN)
     Route: 060
     Dates: start: 20201207, end: 20210104
  32. FENTANYL [Concomitant]
     Active Substance: FENTANYL\FENTANYL CITRATE
     Dosage: 100 UG, ONCE/SINGLE (100 UG, ONCE)
     Route: 060
     Dates: start: 20201009, end: 20201009
  33. FENTANYL [Concomitant]
     Active Substance: FENTANYL\FENTANYL CITRATE
     Indication: Product used for unknown indication
     Dosage: 12 UG, QH (12 UG Q1HR)
     Route: 062
     Dates: start: 20200813, end: 20200817
  34. FENTANYL [Concomitant]
     Active Substance: FENTANYL\FENTANYL CITRATE
     Dosage: 100 UG, ONCE/SINGLE (100 UG, ONCE, PRN)
     Route: 060
     Dates: start: 20201022, end: 20201022
  35. FILGRASTIM [Concomitant]
     Active Substance: FILGRASTIM
     Indication: Product used for unknown indication
     Dosage: 48000000 UL
     Route: 058
     Dates: start: 20201012
  36. FILGRASTIM [Concomitant]
     Active Substance: FILGRASTIM
     Dosage: 48000000 UL
     Route: 059
     Dates: start: 20201012
  37. IBRUTINIB [Concomitant]
     Active Substance: IBRUTINIB
     Dosage: 140 MG, QD
     Route: 048
     Dates: start: 20200819, end: 20200826
  38. IBRUTINIB [Concomitant]
     Active Substance: IBRUTINIB
     Dosage: 140 MG, QD
     Route: 048
     Dates: start: 20200825, end: 20200915
  39. IBRUTINIB [Concomitant]
     Active Substance: IBRUTINIB
     Indication: Product used for unknown indication
     Dosage: 560 MG, QD
     Route: 048
     Dates: start: 20200813, end: 20200818
  40. MOVICOLON [Concomitant]
     Active Substance: POLYETHYLENE GLYCOL 3350\POTASSIUM CHLORIDE\SODIUM BICARBONATE\SODIUM CHLORIDE
     Indication: Product used for unknown indication
     Dosage: 13.8 G, PRN
     Route: 048
     Dates: start: 20200921
  41. MOVICOLON [Concomitant]
     Active Substance: POLYETHYLENE GLYCOL 3350\POTASSIUM CHLORIDE\SODIUM BICARBONATE\SODIUM CHLORIDE
     Dosage: 13.8 MG, Q12H (13.8 MG, BID)
     Route: 048
     Dates: start: 20201009, end: 20201010
  42. NOREPINEPHRINE\NOREPINEPHRINE BITARTRATE [Concomitant]
     Active Substance: NOREPINEPHRINE\NOREPINEPHRINE BITARTRATE
     Dosage: 0.2 ?G/KG (/MIN)
     Route: 041
     Dates: start: 20201009, end: 20201010
  43. NOREPINEPHRINE\NOREPINEPHRINE BITARTRATE [Concomitant]
     Active Substance: NOREPINEPHRINE\NOREPINEPHRINE BITARTRATE
     Indication: Product used for unknown indication
     Dosage: 0.2 ?G/KG (/MIN)
     Route: 042
     Dates: start: 20201009, end: 20201010
  44. ACETAMINOPHEN [Concomitant]
     Active Substance: ACETAMINOPHEN
     Indication: Product used for unknown indication
     Dosage: 1000 MG, BID
     Route: 048
     Dates: start: 20200801, end: 20200817
  45. ACETAMINOPHEN [Concomitant]
     Active Substance: ACETAMINOPHEN
     Dosage: 1000 MG, Q12H (1000 MG, BID)
     Route: 048
     Dates: start: 20201008, end: 20201008
  46. ACETAMINOPHEN [Concomitant]
     Active Substance: ACETAMINOPHEN
     Dosage: 1000 MG, QID OR AS NEEDED
     Route: 048
     Dates: start: 20201009, end: 20201011
  47. ACETAMINOPHEN [Concomitant]
     Active Substance: ACETAMINOPHEN
     Dosage: 1000 MG, Q8H (1000 MG, TID)
     Route: 042
     Dates: start: 20201009, end: 20201009
  48. ACETAMINOPHEN [Concomitant]
     Active Substance: ACETAMINOPHEN
     Dosage: 1000 MG, ONCE
     Route: 048
     Dates: start: 20200915, end: 20200915
  49. ACETAMINOPHEN [Concomitant]
     Active Substance: ACETAMINOPHEN
     Dosage: 1000 MG, ONCE
     Route: 048
     Dates: start: 20200922, end: 20200922
  50. ACETAMINOPHEN [Concomitant]
     Active Substance: ACETAMINOPHEN
     Dosage: 500 MG, Q4HR
     Route: 042
     Dates: start: 20200916, end: 20200921
  51. ACETAMINOPHEN [Concomitant]
     Active Substance: ACETAMINOPHEN
     Dosage: 500 MG, Q4HR OR PRN
     Route: 048
     Dates: start: 20200921, end: 20200923
  52. ACETAMINOPHEN [Concomitant]
     Active Substance: ACETAMINOPHEN
     Dosage: 100 MG
     Route: 042
     Dates: start: 20200916, end: 20200917
  53. ACETAMINOPHEN [Concomitant]
     Active Substance: ACETAMINOPHEN
     Dosage: 1000 MG, Q8H (1000 MG, TID)
     Route: 042
     Dates: start: 20201011, end: 20201128
  54. ACETAMINOPHEN [Concomitant]
     Active Substance: ACETAMINOPHEN
     Dosage: 1000 MG, Q8H (1000 MG, TID)
     Dates: start: 20201011, end: 20201027
  55. ACETAMINOPHEN [Concomitant]
     Active Substance: ACETAMINOPHEN
     Dosage: 1000 MG, ONCE/SINGLE (1000 MG, ONCE)
     Route: 048
     Dates: start: 20210329, end: 20210329
  56. ACETAMINOPHEN [Concomitant]
     Active Substance: ACETAMINOPHEN
     Dosage: 1000 MG, PRN
     Route: 048
     Dates: start: 20210330
  57. PLATELETS [Concomitant]
     Active Substance: HUMAN PLATELET, ALLOGENIC
     Indication: Platelet count decreased
     Dosage: UNK
     Route: 065
     Dates: start: 20200909, end: 20200909
  58. RASBURICASE [Concomitant]
     Active Substance: RASBURICASE
     Indication: Product used for unknown indication
     Dosage: 3 MG, QD
     Route: 042
     Dates: start: 20200915, end: 20200916
  59. RITUXIMAB [Concomitant]
     Active Substance: RITUXIMAB
     Indication: Product used for unknown indication
     Dosage: UNK
     Route: 065
  60. TEMAZEPAM [Concomitant]
     Active Substance: TEMAZEPAM
     Dosage: 10 MG, Q12H (10 MG, BID)
     Route: 048
     Dates: start: 20200918, end: 20200924
  61. TEMAZEPAM [Concomitant]
     Active Substance: TEMAZEPAM
     Indication: Product used for unknown indication
     Dosage: 10 MG, ONCE/SINGLE (10 MG, ONCE)
     Route: 048
     Dates: start: 20200914, end: 20200914
  62. TEMAZEPAM [Concomitant]
     Active Substance: TEMAZEPAM
     Dosage: 10 MG, ONCE/SINGLE (10 MG, ONCE)
     Route: 048
     Dates: start: 20200918, end: 20200918
  63. VALACYCLOVIR HYDROCHLORIDE [Concomitant]
     Active Substance: VALACYCLOVIR HYDROCHLORIDE
     Dosage: 500 MG, BID
     Route: 048
     Dates: start: 20200909, end: 20200910
  64. VALACYCLOVIR HYDROCHLORIDE [Concomitant]
     Active Substance: VALACYCLOVIR HYDROCHLORIDE
     Indication: Product used for unknown indication
     Dosage: 500 MG, Q12H (500 MG, BID)
     Route: 048
     Dates: start: 20200825
  65. VORICONAZOLE [Concomitant]
     Active Substance: VORICONAZOLE
     Dosage: 200 MG, Q12H (200 MG, BID)
     Route: 042
     Dates: start: 20200819, end: 20200820
  66. VORICONAZOLE [Concomitant]
     Active Substance: VORICONAZOLE
     Dosage: 200 MG, Q12H (200 MG, BID)
     Route: 048
     Dates: start: 20200825, end: 20200910
  67. VORICONAZOLE [Concomitant]
     Active Substance: VORICONAZOLE
     Dosage: 200 MG, Q12H (200 MG, BID)
     Route: 048
     Dates: start: 20200909, end: 20201010
  68. VORICONAZOLE [Concomitant]
     Active Substance: VORICONAZOLE
     Indication: Product used for unknown indication
     Dosage: 338.8 MG, Q12H (338.8 MG, BID)
     Route: 042
     Dates: start: 20200811, end: 20200819
  69. VORICONAZOLE [Concomitant]
     Active Substance: VORICONAZOLE
     Dosage: 400 MG, QD
     Route: 048
     Dates: start: 20201120, end: 20201121
  70. VORICONAZOLE [Concomitant]
     Active Substance: VORICONAZOLE
     Dosage: 500 MG, Q12H (500 MG, BID)
     Route: 048
     Dates: start: 20200909

REACTIONS (29)
  - Delirium [Not Recovered/Not Resolved]
  - Delirium [Recovered/Resolved]
  - Haemophagocytic lymphohistiocytosis [Recovered/Resolved]
  - Neutropenic sepsis [Recovered/Resolved]
  - Balance disorder [Recovered/Resolved]
  - Aphasia [Recovered/Resolved]
  - Tremor [Recovered/Resolved]
  - Pyrexia [Recovered/Resolved]
  - Cytokine release syndrome [Recovered/Resolved]
  - Accidental exposure to product [Recovered/Resolved]
  - Confusional state [Not Recovered/Not Resolved]
  - Abnormal faeces [Not Recovered/Not Resolved]
  - Fall [Recovered/Resolved]
  - C-reactive protein increased [Not Recovered/Not Resolved]
  - Parainfluenzae virus infection [Not Recovered/Not Resolved]
  - Rhinovirus infection [Not Recovered/Not Resolved]
  - Lacrimation increased [Recovered/Resolved]
  - Fluid retention [Recovered/Resolved]
  - Constipation [Recovered/Resolved]
  - Vomiting [Recovered/Resolved]
  - Nausea [Recovered/Resolved]
  - Nausea [Recovered/Resolved]
  - Cough [Not Recovered/Not Resolved]
  - Pyrexia [Recovered/Resolved]
  - Vomiting [Recovered/Resolved]
  - Vomiting [Recovered/Resolved]
  - Vomiting [Recovered/Resolved]
  - Vomiting [Not Recovered/Not Resolved]
  - Infection [Unknown]

NARRATIVE: CASE EVENT DATE: 20200910
